FAERS Safety Report 11053100 (Version 1)
Quarter: 2015Q2

REPORT INFORMATION
  Report Type: Spontaneous
  Country: US (occurrence: US)
  Receive Date: 20150421
  Receipt Date: 20150421
  Transmission Date: 20150821
  Serious: No
  Sender: FDA-Public Use
  Company Number: US-GLAXOSMITHKLINE-US2015GSK051128

PATIENT
  Sex: Male

DRUGS (1)
  1. TANZEUM [Suspect]
     Active Substance: ALBIGLUTIDE
     Indication: TYPE 2 DIABETES MELLITUS
     Dosage: 30 MG, WE
     Dates: start: 201503

REACTIONS (5)
  - Gastrointestinal sounds abnormal [Recovering/Resolving]
  - Decreased appetite [Unknown]
  - Gastric disorder [Recovering/Resolving]
  - Eructation [Recovering/Resolving]
  - Nausea [Recovering/Resolving]
